FAERS Safety Report 7364521-4 (Version None)
Quarter: 2011Q1

REPORT INFORMATION
  Report Type: 
  Country: None (occurrence: None)
  Receive Date: 20110315
  Receipt Date: 20110315
  Transmission Date: 20110831
  Serious: Yes (Death, Hospitalization)
  Sender: FDA-Public Use
  Company Number: None

PATIENT
  Sex: Male
  Weight: 73 kg

DRUGS (2)
  1. ETOPOSIDE [Suspect]
     Dosage: 546 MG
  2. CISPLATIN [Suspect]
     Dosage: 146 MG

REACTIONS (2)
  - NEUTROPENIC SEPSIS [None]
  - SEPTIC SHOCK [None]
